FAERS Safety Report 9517836 (Version 1)
Quarter: 2013Q3

REPORT INFORMATION
  Report Type: Spontaneous
  Country: US (occurrence: None)
  Receive Date: 20130910
  Receipt Date: 20130910
  Transmission Date: 20140515
  Serious: No
  Sender: FDA-Public Use
  Company Number: None

PATIENT
  Sex: Female

DRUGS (3)
  1. IBUPROFEN SOFTGELS [Suspect]
     Indication: HEADACHE
     Dosage: 8/CONTAINER
     Route: 048
  2. IBUPROFEN SOFTGELS [Suspect]
     Indication: ARTHRALGIA
     Dosage: 8/CONTAINER
     Route: 048
  3. ACAI BERRY 1000MG [Concomitant]

REACTIONS (3)
  - Tongue disorder [None]
  - Sensory disturbance [None]
  - Accidental exposure to product [None]
